FAERS Safety Report 25773700 (Version 2)
Quarter: 2025Q4

REPORT INFORMATION
  Report Type: Spontaneous
  Country: CA (occurrence: CA)
  Receive Date: 20250908
  Receipt Date: 20251030
  Transmission Date: 20260117
  Serious: Yes (Other)
  Sender: PFIZER
  Company Number: CA-PFIZER INC-202500175400

PATIENT
  Age: 63 Year
  Sex: Female
  Weight: 76 kg

DRUGS (3)
  1. IXIFI [Suspect]
     Active Substance: INFLIXIMAB-QBTX
     Indication: Colitis ulcerative
     Dosage: 5 MG/KG, EVERY 8 WEEK
     Route: 042
     Dates: start: 20250721, end: 20250721
  2. IXIFI [Suspect]
     Active Substance: INFLIXIMAB-QBTX
     Dosage: 380 MG, AFTER 6 WEEKS AND 1 DAY, (5 MG/KG EVERY 8 WEEKS)
     Route: 042
     Dates: start: 20250902
  3. METHOTREXATE [Concomitant]
     Active Substance: METHOTREXATE
     Dosage: 1 DF, UNKNOWN
     Dates: start: 2019

REACTIONS (1)
  - Uveitis [Not Recovered/Not Resolved]

NARRATIVE: CASE EVENT DATE: 20250101
